FAERS Safety Report 8598085-4 (Version None)
Quarter: 2012Q3

REPORT INFORMATION
  Report Type: 
  Country: None (occurrence: None)
  Receive Date: 20120802
  Receipt Date: 20120723
  Transmission Date: 20120928
  Serious: Yes (Other)
  Sender: FDA-Public Use
  Company Number: 2012AP002202

PATIENT
  Sex: Female

DRUGS (3)
  1. ALENDRONATE SODIUM [Suspect]
     Indication: OSTEOPOROSIS
     Dates: start: 20081201, end: 20090801
  2. ALENDRONATE SODIUM [Suspect]
     Indication: OSTEOPOROSIS
     Dates: start: 20100901, end: 20101201
  3. ALENDRONATE SODIUM [Suspect]
     Indication: OSTEOPOROSIS
     Dates: start: 20030101, end: 20081101

REACTIONS (11)
  - TOXICITY TO VARIOUS AGENTS [None]
  - LOW TURNOVER OSTEOPATHY [None]
  - BONE DENSITY DECREASED [None]
  - FEAR OF DISEASE [None]
  - PAIN [None]
  - ANXIETY [None]
  - EMOTIONAL DISTRESS [None]
  - QUALITY OF LIFE DECREASED [None]
  - ANHEDONIA [None]
  - FEMUR FRACTURE [None]
  - STRESS FRACTURE [None]
